FAERS Safety Report 17666137 (Version 3)
Quarter: 2022Q2

REPORT INFORMATION
  Report Type: Spontaneous
  Country: US (occurrence: US)
  Receive Date: 20200414
  Receipt Date: 20220427
  Transmission Date: 20220721
  Serious: No
  Sender: FDA-Public Use
  Company Number: US-PFIZER INC-2020151697

PATIENT
  Age: 75 Year
  Sex: Female
  Weight: 50.8 kg

DRUGS (3)
  1. XELJANZ XR [Suspect]
     Active Substance: TOFACITINIB CITRATE
     Indication: Rheumatoid arthritis
     Dosage: 11 MG, DAILY
     Route: 048
  2. HYDROXYCHLOROQUINE [Concomitant]
     Active Substance: HYDROXYCHLOROQUINE
     Indication: Rheumatoid arthritis
     Dosage: 200 MG, DAILY
     Route: 048
     Dates: start: 202008
  3. PREDNISONE [Concomitant]
     Active Substance: PREDNISONE
     Indication: Rheumatoid arthritis
     Dosage: 2.5 MG, 1X/DAY
     Dates: start: 201903

REACTIONS (3)
  - Inflammation [Unknown]
  - Condition aggravated [Unknown]
  - Swelling [Unknown]

NARRATIVE: CASE EVENT DATE: 20200101
